FAERS Safety Report 22590296 (Version 1)
Quarter: 2023Q2

REPORT INFORMATION
  Report Type: Spontaneous
  Country: US (occurrence: US)
  Receive Date: 20230612
  Receipt Date: 20230612
  Transmission Date: 20230722
  Serious: Yes (Other)
  Sender: FDA-Public Use
  Company Number: US-SA-SAC20230609001356

PATIENT
  Age: 19 Year
  Sex: Male

DRUGS (8)
  1. ELOCTATE [Suspect]
     Active Substance: EFMOROCTOCOG ALFA
     Indication: Factor VIII deficiency
     Dosage: 2600 U, Q3D;  (2340-2860) SLOW IV PUSH EVERY 72 HOURS
     Route: 042
     Dates: start: 202009
  2. ELOCTATE [Suspect]
     Active Substance: EFMOROCTOCOG ALFA
     Indication: Factor VIII deficiency
     Dosage: 2600 U, Q3D;  (2340-2860) SLOW IV PUSH EVERY 72 HOURS
     Route: 042
     Dates: start: 202009
  3. ELOCTATE [Suspect]
     Active Substance: EFMOROCTOCOG ALFA
     Dosage: 2600 U, (2340-2860) SLOW IV PUSH EVERY 72 HOURS AND AS NEEDED FOR BLEEDING EVENTS
     Route: 042
     Dates: start: 202009
  4. ELOCTATE [Suspect]
     Active Substance: EFMOROCTOCOG ALFA
     Dosage: 2600 U, (2340-2860) SLOW IV PUSH EVERY 72 HOURS AND AS NEEDED FOR BLEEDING EVENTS
     Route: 042
     Dates: start: 202009
  5. ELOCTATE [Suspect]
     Active Substance: EFMOROCTOCOG ALFA
     Dosage: 600 U, PRN
     Route: 042
  6. ELOCTATE [Suspect]
     Active Substance: EFMOROCTOCOG ALFA
     Dosage: 600 U, PRN
     Route: 042
  7. ELOCTATE [Suspect]
     Active Substance: EFMOROCTOCOG ALFA
     Dosage: 2000 U
     Route: 042
  8. ELOCTATE [Suspect]
     Active Substance: EFMOROCTOCOG ALFA
     Dosage: 2000 U
     Route: 042

REACTIONS (1)
  - Haemorrhage [Not Recovered/Not Resolved]
